FAERS Safety Report 8344372 (Version 12)
Quarter: 2013Q4

REPORT INFORMATION
  Report Type: Report from Study
  Country: CA (occurrence: CA)
  Receive Date: 20120119
  Receipt Date: 20131217
  Transmission Date: 20140711
  Serious: Yes (Other)
  Sender: FDA-Public Use
  Company Number: PHHY2011CA58705

PATIENT
  Age: 54 Year
  Sex: Female

DRUGS (4)
  1. SANDOSTATIN LAR [Suspect]
     Indication: ACROMEGALY
     Dosage: 30 MG, EVERY 4 WEEKS
     Route: 030
     Dates: start: 20040901
  2. SANDOSTATIN LAR [Suspect]
     Dosage: 30 MG, EVERY 4 WEEKS
     Route: 030
     Dates: start: 20070907
  3. NASOCORT [Concomitant]
     Dosage: UNK UKN, UNK
     Dates: start: 201306
  4. NASOCORT [Concomitant]
     Dosage: UNK UKN, UNK

REACTIONS (19)
  - Fall [Unknown]
  - Abasia [Unknown]
  - Sleep apnoea syndrome [Unknown]
  - Insomnia [Unknown]
  - Cough [Unknown]
  - Nasopharyngitis [Unknown]
  - Rhinorrhoea [Unknown]
  - Skin disorder [Unknown]
  - Limb injury [Unknown]
  - Local swelling [Unknown]
  - Pain in extremity [Unknown]
  - Epistaxis [Recovered/Resolved]
  - Sneezing [Unknown]
  - Glucose tolerance impaired [Unknown]
  - Tremor [Unknown]
  - Malaise [Unknown]
  - Dizziness [Unknown]
  - Headache [Recovered/Resolved]
  - Injection site pain [Unknown]
